FAERS Safety Report 15424751 (Version 1)
Quarter: 2018Q3

REPORT INFORMATION
  Report Type: Spontaneous
  Country: US (occurrence: US)
  Receive Date: 20180919
  Receipt Date: 20180919
  Transmission Date: 20181010
  Serious: No
  Sender: FDA-Public Use
  Company Number: None

PATIENT
  Sex: Female

DRUGS (1)
  1. RIBAVIRIN CAP [Suspect]
     Active Substance: RIBAVIRIN
     Dates: start: 20180720

REACTIONS (3)
  - Rash [None]
  - Pruritus [None]
  - Acne [None]
